FAERS Safety Report 19053448 (Version 2)
Quarter: 2021Q2

REPORT INFORMATION
  Report Type: Other
  Country: US (occurrence: US)
  Receive Date: 20210324
  Receipt Date: 20210504
  Transmission Date: 20210717
  Serious: Yes (Other)
  Sender: FDA-Public Use
  Company Number: US-ROCHE-2767999

PATIENT
  Age: 77 Year
  Sex: Female
  Weight: 74.91 kg

DRUGS (15)
  1. OCREVUS [Suspect]
     Active Substance: OCRELIZUMAB
     Indication: PRIMARY PROGRESSIVE MULTIPLE SCLEROSIS
     Route: 042
     Dates: start: 202002
  2. METOPROLOL. [Concomitant]
     Active Substance: METOPROLOL
     Indication: HYPERTENSION
     Dosage: TAKE 3 PILLS (50MG EACH) ;ONGOING: YES
     Route: 048
  3. ALPRAZOLAM. [Suspect]
     Active Substance: ALPRAZOLAM
     Indication: ANXIETY
     Dosage: TAKES 1?MORNING, 1?LUNCH, AND 2?AT NIGHT ;ONGOING: YES
     Route: 048
  4. PRAVASTATIN. [Concomitant]
     Active Substance: PRAVASTATIN
     Indication: BLOOD CHOLESTEROL INCREASED
     Route: 048
  5. OCREVUS [Suspect]
     Active Substance: OCRELIZUMAB
     Indication: RELAPSING MULTIPLE SCLEROSIS
     Route: 065
     Dates: start: 20200812
  6. LATANOPROST. [Concomitant]
     Active Substance: LATANOPROST
     Dosage: ADMINISTERED TO BOTH EYES ;ONGOING: YES
     Route: 031
  7. OCREVUS [Suspect]
     Active Substance: OCRELIZUMAB
     Route: 065
     Dates: start: 20200127
  8. GABAPENTIN. [Concomitant]
     Active Substance: GABAPENTIN
     Dosage: TAKEN MORNING AND NOON ;ONGOING: YES
     Route: 048
  9. GABAPENTIN. [Concomitant]
     Active Substance: GABAPENTIN
     Indication: EMOTIONAL DISTRESS
     Dosage: TAKEN MORNING, NOON, AND NIGHT ;ONGOING: NO
     Route: 048
  10. ANASTROZOLE. [Concomitant]
     Active Substance: ANASTROZOLE
     Indication: BREAST CANCER
     Dosage: TO BE ADMINISTERED 5?10 YEARS ;ONGOING: YES
     Route: 048
     Dates: start: 20210206
  11. COVID?19 VACCINE NOS. [Concomitant]
     Active Substance: COVID-19 VACCINE NOS
     Dosage: FIRST DOSE COMPLETED 8?JAN?2021 AND SECOND DOSE WAS COMPLETED 28?JAN?2021.
  12. PRESERVISION [Concomitant]
     Active Substance: MINERALS\VITAMINS
     Indication: GLAUCOMA
     Dosage: TAKE 2 PILLS PER DAY ;ONGOING: YES
     Route: 048
  13. OCREVUS [Suspect]
     Active Substance: OCRELIZUMAB
     Indication: MULTIPLE SCLEROSIS
     Route: 065
     Dates: start: 20200113, end: 20200812
  14. TRAZODONE [Concomitant]
     Active Substance: TRAZODONE HYDROCHLORIDE
     Indication: DEPRESSION
     Route: 048
  15. VITAMIN D2 [Concomitant]
     Active Substance: ERGOCALCIFEROL
     Dosage: TAKE 1 PILL ;ONGOING: YES
     Route: 048

REACTIONS (3)
  - Hypertension [Recovered/Resolved]
  - Breast cancer [Unknown]
  - Drug dependence [Unknown]

NARRATIVE: CASE EVENT DATE: 202012
